FAERS Safety Report 7267554-1 (Version None)
Quarter: 2011Q1

REPORT INFORMATION
  Report Type: 
  Country: None (occurrence: None)
  Receive Date: 20110201
  Receipt Date: 20110124
  Transmission Date: 20110831
  Serious: Yes (Hospitalization)
  Sender: FDA-Public Use
  Company Number: US-ELI_LILLY_AND_COMPANY-US201101006086

PATIENT
  Sex: Male

DRUGS (3)
  1. LANTUS [Concomitant]
  2. HUMALOG [Suspect]
     Dosage: UNK, AS NEEDED
  3. HUMALOG [Suspect]

REACTIONS (2)
  - REHABILITATION THERAPY [None]
  - WRONG DRUG ADMINISTERED [None]
